FAERS Safety Report 5116261-X (Version None)
Quarter: 2006Q3

REPORT INFORMATION
  Report Type: 
  Country: None (occurrence: None)
  Receive Date: 20060927
  Receipt Date: 20060922
  Transmission Date: 20061208
  Serious: Yes (Other)
  Sender: FDA-Public Use
  Company Number: CH-GLAXOSMITHKLINE-B0439635A

PATIENT
  Sex: Male
  Weight: 89 kg

DRUGS (8)
  1. AVANDAMET [Suspect]
     Indication: DIABETES MELLITUS
     Dosage: 1TAB TWICE PER DAY
     Route: 048
     Dates: start: 20050909
  2. LANTUS [Concomitant]
     Route: 065
  3. BETABLOCKER [Concomitant]
     Route: 065
  4. DIURETIC [Concomitant]
     Route: 065
  5. ASPIRIN [Concomitant]
     Route: 065
  6. ANTIDEPRESSANT [Concomitant]
     Route: 065
  7. UNKNOWN [Concomitant]
  8. UNKNOWN [Concomitant]

REACTIONS (1)
  - COLON CANCER [None]
